FAERS Safety Report 7492505-4 (Version None)
Quarter: 2011Q2

REPORT INFORMATION
  Report Type: 
  Country: None (occurrence: None)
  Receive Date: 20110519
  Receipt Date: 20110519
  Transmission Date: 20111010
  Serious: Yes (Death, Other)
  Sender: FDA-Public Use
  Company Number: BR-PFIZER INC-2011008768

PATIENT
  Age: 64 Year
  Sex: Female
  Weight: 60 kg

DRUGS (5)
  1. GLYBURIDE [Concomitant]
     Indication: DIABETES MELLITUS
     Dosage: UNK
  2. LORAX [Concomitant]
     Indication: DEPRESSION
     Dosage: UNK
  3. CLONAZEPAM [Concomitant]
     Indication: DEPRESSION
     Dosage: UNK
  4. VARENICLINE TARTRATE [Suspect]
     Indication: TOBACCO USER
     Dosage: 0.5 MG, 1X/DAY
     Route: 048
     Dates: start: 20110104
  5. LOSARTAN POTASSIUM [Concomitant]
     Dosage: UNK

REACTIONS (2)
  - BACK PAIN [None]
  - DEATH [None]
